FAERS Safety Report 11401113 (Version 2)
Quarter: 2015Q3

REPORT INFORMATION
  Report Type: Spontaneous
  Country: IT (occurrence: IT)
  Receive Date: 20150820
  Receipt Date: 20150903
  Transmission Date: 20151125
  Serious: Yes (Death, Hospitalization)
  Sender: FDA-Public Use
  Company Number: PHHY2015IT097075

PATIENT
  Age: 78 Year
  Sex: Male

DRUGS (1)
  1. ALLOPURINOL. [Suspect]
     Active Substance: ALLOPURINOL
     Indication: HYPERURICAEMIA
     Dosage: 300 MG, QD
     Route: 048
     Dates: start: 20150515, end: 20150606

REACTIONS (5)
  - Cerebrovascular accident [Fatal]
  - Stevens-Johnson syndrome [Fatal]
  - Stomatitis [Unknown]
  - Pyrexia [Unknown]
  - Skin lesion [Unknown]

NARRATIVE: CASE EVENT DATE: 20150605
